FAERS Safety Report 20424955 (Version 1)
Quarter: 2022Q1

REPORT INFORMATION
  Report Type: Report from Study
  Country: US (occurrence: US)
  Receive Date: 20220204
  Receipt Date: 20220204
  Transmission Date: 20220424
  Serious: No
  Sender: FDA-Public Use
  Company Number: US-EXELIXIS-CABO-20036415

PATIENT
  Age: 65 Year
  Sex: Male

DRUGS (1)
  1. CABOMETYX [Suspect]
     Active Substance: CABOZANTINIB S-MALATE
     Indication: Prostate cancer
     Dosage: 60 MG, QD
     Route: 048

REACTIONS (6)
  - Frequent bowel movements [Unknown]
  - Hepatic enzyme increased [Unknown]
  - Dyspnoea exertional [Unknown]
  - Palmar-plantar erythrodysaesthesia syndrome [Unknown]
  - Rash [Unknown]
  - Off label use [Unknown]

NARRATIVE: CASE EVENT DATE: 20210101
